FAERS Safety Report 18709841 (Version 2)
Quarter: 2021Q1

REPORT INFORMATION
  Report Type: Spontaneous
  Country: US (occurrence: US)
  Receive Date: 20210107
  Receipt Date: 20210109
  Transmission Date: 20210419
  Serious: No
  Sender: FDA-Public Use
  Company Number: US-JNJFOC-20201242033

PATIENT
  Age: 78 Year
  Sex: Female
  Weight: 72.19 kg

DRUGS (1)
  1. MENS ROGAINE EXTRA STRENGTH [Suspect]
     Active Substance: MINOXIDIL
     Indication: ALOPECIA
     Dosage: DOSE: JUST COVER THE SPOT?PRODUCT LAST ADMINISTERED ON 18?DEC?2020
     Route: 061

REACTIONS (3)
  - Product use issue [Unknown]
  - Off label use [Unknown]
  - Alopecia [Not Recovered/Not Resolved]

NARRATIVE: CASE EVENT DATE: 202011
